FAERS Safety Report 10498166 (Version 1)
Quarter: 2014Q4

REPORT INFORMATION
  Report Type: Spontaneous
  Country: US (occurrence: None)
  Receive Date: 20141003
  Receipt Date: 20141003
  Transmission Date: 20150528
  Serious: Yes (Other)
  Sender: FDA-Public Use
  Company Number: None

PATIENT
  Age: 57 Year
  Sex: Female
  Weight: 54.43 kg

DRUGS (2)
  1. MORPHINE [Concomitant]
     Active Substance: MORPHINE
  2. LACTULOSE. [Suspect]
     Active Substance: LACTULOSE
     Indication: CONSTIPATION
     Dosage: LACTULOSE 15 - 30 CC QD ORAL
     Route: 048
     Dates: start: 20140701, end: 20140901

REACTIONS (4)
  - Flatulence [None]
  - Drug ineffective [None]
  - Product substitution issue [None]
  - Abdominal distension [None]

NARRATIVE: CASE EVENT DATE: 20141002
